FAERS Safety Report 9140729 (Version 2)
Quarter: 2013Q2

REPORT INFORMATION
  Report Type: Spontaneous
  Country: TR (occurrence: TR)
  Receive Date: 20130305
  Receipt Date: 20130424
  Transmission Date: 20140414
  Serious: Yes (Hospitalization)
  Sender: FDA-Public Use
  Company Number: TR-VERTEX PHARMACEUTICALS INC.-2013-003036

PATIENT
  Age: 69 Year
  Sex: Male

DRUGS (6)
  1. INCIVO [Suspect]
     Indication: CHRONIC HEPATITIS C
     Route: 048
  2. INCIVO [Suspect]
     Indication: HEPATIC CIRRHOSIS
  3. RIBAVIRIN [Suspect]
     Indication: CHRONIC HEPATITIS C
     Dosage: DOSAGE FORM: UNSPECIFIED
     Route: 065
  4. RIBAVIRIN [Suspect]
     Indication: HEPATIC CIRRHOSIS
  5. PEGINTERFERON ALFA [Suspect]
     Indication: CHRONIC HEPATITIS C
     Dosage: DOSAGE FORM: UNSPECIFIED
     Route: 065
  6. PEGINTERFERON ALFA [Suspect]
     Indication: HEPATIC CIRRHOSIS

REACTIONS (7)
  - Syncope [Not Recovered/Not Resolved]
  - Platelet count decreased [Unknown]
  - Haemoglobin decreased [Unknown]
  - Sleep disorder [Unknown]
  - Epistaxis [Recovered/Resolved]
  - Treatment noncompliance [Recovered/Resolved]
  - Rash [Unknown]
